FAERS Safety Report 16398935 (Version 1)
Quarter: 2019Q2

REPORT INFORMATION
  Report Type: Spontaneous
  Country: US (occurrence: US)
  Receive Date: 20190606
  Receipt Date: 20190606
  Transmission Date: 20190711
  Serious: Yes (Other)
  Sender: FDA-Public Use
  Company Number: US-009507513-1906USA001292

PATIENT
  Age: 35 Year
  Sex: Female
  Weight: 159.64 kg

DRUGS (1)
  1. NEXPLANON [Suspect]
     Active Substance: ETONOGESTREL
     Dosage: 1 DOSAGE FORM, UNK
     Route: 058
     Dates: start: 20190524

REACTIONS (4)
  - Implant site pain [Unknown]
  - Device kink [Not Recovered/Not Resolved]
  - Medical device site discomfort [Unknown]
  - Device dislocation [Not Recovered/Not Resolved]

NARRATIVE: CASE EVENT DATE: 20190527
